FAERS Safety Report 8825297 (Version 2)
Quarter: 2012Q4

REPORT INFORMATION
  Report Type: 
  Country: FR (occurrence: FR)
  Receive Date: 20121004
  Receipt Date: 20121014
  Transmission Date: 20130627
  Serious: Yes (Other)
  Sender: FDA-Public Use
  Company Number: FR-TEVA-362247ISR

PATIENT
  Age: 62 Year
  Sex: Male

DRUGS (14)
  1. ETOPOSIDE [Suspect]
     Indication: LYMPHOMA
  2. PREDNISONE [Suspect]
     Indication: LYMPHOMA
  3. CYCLOPHOSPHAMID [Suspect]
     Indication: LYMPHOMA
  4. INTERFERON ALFA [Suspect]
     Indication: LYMPHOMA
  5. RITUXIMAB [Suspect]
     Indication: LYMPHOMA
  6. ADRIAMYCIN [Suspect]
  7. BLEOMYCIN [Concomitant]
     Indication: HODGKIN^S DISEASE
  8. VINBLASTINE [Concomitant]
     Indication: HODGKIN^S DISEASE
  9. PROCARBAZINE [Concomitant]
     Indication: HODGKIN^S DISEASE
  10. DEXAMETHASON [Concomitant]
     Indication: HODGKIN^S DISEASE
  11. CYTARABINE [Concomitant]
     Indication: HODGKIN^S DISEASE
  12. OXALIPLATIN [Concomitant]
     Indication: HODGKIN^S DISEASE
  13. IFOSFAMIDE [Concomitant]
     Indication: HODGKIN^S DISEASE
  14. CARBOPLATIN [Concomitant]
     Indication: HODGKIN^S DISEASE

REACTIONS (1)
  - Hodgkin^s disease [Not Recovered/Not Resolved]
